FAERS Safety Report 6617723-6 (Version None)
Quarter: 2010Q1

REPORT INFORMATION
  Report Type: 
  Country: None (occurrence: None)
  Receive Date: 20100308
  Receipt Date: 20100223
  Transmission Date: 20100710
  Serious: Yes (Other)
  Sender: FDA-Public Use
  Company Number: PHBS2007NZ03636

PATIENT
  Sex: Female

DRUGS (1)
  1. CLOZARIL [Suspect]
     Dosage: 300 MG/DAY
     Dates: start: 20060619

REACTIONS (2)
  - CHLAMYDIAL INFECTION [None]
  - DRUG EXPOSURE DURING PREGNANCY [None]
